FAERS Safety Report 10086963 (Version 1)
Quarter: 2014Q2

REPORT INFORMATION
  Report Type: Report from Study
  Country: ES (occurrence: ES)
  Receive Date: 20140418
  Receipt Date: 20140418
  Transmission Date: 20141212
  Serious: Yes (Other)
  Sender: FDA-Public Use
  Company Number: ES-BAXTER-2014BAX018753

PATIENT
  Sex: 0

DRUGS (1)
  1. KIOVIG 100 MG/ML SOLUCI?N PARA PERFUSI?N 20G/200ML [Suspect]
     Indication: PRIMARY IMMUNODEFICIENCY SYNDROME

REACTIONS (1)
  - Convulsion [Unknown]
